FAERS Safety Report 8983924 (Version 1)
Quarter: 2012Q4

REPORT INFORMATION
  Report Type: Spontaneous
  Country: US (occurrence: None)
  Receive Date: 20121218
  Receipt Date: 20121218
  Transmission Date: 20130627
  Serious: No
  Sender: FDA-Public Use
  Company Number: None

PATIENT
  Age: 59 Year
  Sex: Female
  Weight: 113 kg

DRUGS (3)
  1. VANCOMYCIN [Suspect]
     Dosage: 4 doses
     Route: 042
     Dates: start: 20121206, end: 20121208
  2. VANCOMYCIN [Suspect]
  3. ZOSYN [Suspect]
     Dosage: 9 doses
     Route: 042
     Dates: start: 20121206, end: 20121209

REACTIONS (1)
  - Blood creatinine increased [None]
